FAERS Safety Report 13286609 (Version 1)
Quarter: 2017Q1

REPORT INFORMATION
  Report Type: Spontaneous
  Country: US (occurrence: US)
  Receive Date: 20170302
  Receipt Date: 20170302
  Transmission Date: 20170428
  Serious: Yes (Other)
  Sender: FDA-Public Use
  Company Number: US-SA-2017SA024719

PATIENT
  Sex: Female

DRUGS (1)
  1. AUBAGIO [Suspect]
     Active Substance: TERIFLUNOMIDE
     Indication: MULTIPLE SCLEROSIS
     Route: 065

REACTIONS (8)
  - Fatigue [Unknown]
  - Conjunctivitis [Unknown]
  - Bronchitis [Unknown]
  - Malaise [Unknown]
  - Sinus headache [Unknown]
  - Asthma [Unknown]
  - Pneumonia [Unknown]
  - Sinusitis [Unknown]
